FAERS Safety Report 16604388 (Version 1)
Quarter: 2019Q3

REPORT INFORMATION
  Report Type: Spontaneous
  Country: US (occurrence: US)
  Receive Date: 20190721
  Receipt Date: 20190721
  Transmission Date: 20191004
  Serious: No
  Sender: FDA-Public Use
  Company Number: US-GALDERMA-US19002783

PATIENT
  Age: 40 Year
  Sex: Female

DRUGS (9)
  1. BIRTH CONTROL [Concomitant]
     Active Substance: UNSPECIFIED INGREDIENT
  2. ANTI  DEPRESSANT [Concomitant]
     Active Substance: UNSPECIFIED INGREDIENT
  3. FISH OIL [Concomitant]
     Active Substance: FISH OIL
  4. PROACTIV MD DEEP CLEANSING FACE WASH [Concomitant]
     Active Substance: COSMETICS
     Indication: ACNE
     Route: 061
     Dates: start: 20181120, end: 20181228
  5. PROACTIV DEEP CLEANSING WASH [Concomitant]
     Active Substance: SALICYLIC ACID
     Indication: ACNE
     Route: 061
     Dates: start: 20181120, end: 20181228
  6. PROACTIV MD ADAPALENE ACNE TREATMENT [Suspect]
     Active Substance: ADAPALENE
     Indication: ACNE
     Dosage: 0.1%
     Route: 061
     Dates: start: 20181120, end: 20181228
  7. ALLERGY [Concomitant]
     Active Substance: UNSPECIFIED INGREDIENT
  8. MULTIPLE VITAMIN [Concomitant]
     Active Substance: VITAMINS
  9. CALCIUM [Concomitant]
     Active Substance: CALCIUM

REACTIONS (4)
  - Furuncle [Not Recovered/Not Resolved]
  - Pruritus [Not Recovered/Not Resolved]
  - Acne [Not Recovered/Not Resolved]
  - Pain of skin [Not Recovered/Not Resolved]

NARRATIVE: CASE EVENT DATE: 20181228
